FAERS Safety Report 7770074-9 (Version None)
Quarter: 2011Q3

REPORT INFORMATION
  Report Type: 
  Country: None (occurrence: None)
  Receive Date: 20110922
  Receipt Date: 20110718
  Transmission Date: 20111222
  Serious: Yes (Other)
  Sender: FDA-Public Use
  Company Number: US-ASTRAZENECA-2011SE43065

PATIENT
  Age: 62 Year
  Sex: Female
  Weight: 64.9 kg

DRUGS (12)
  1. SEROQUEL [Suspect]
     Indication: PANIC DISORDER
     Route: 048
  2. ZOLOFT [Suspect]
     Indication: ANXIETY DISORDER
     Route: 048
     Dates: start: 20030101
  3. ZOLOFT [Suspect]
     Indication: DEPRESSION
     Route: 048
     Dates: start: 20030101
  4. ATIVAN [Suspect]
     Indication: ANXIETY DISORDER
  5. ATIVAN [Suspect]
     Indication: PANIC DISORDER
  6. SEROQUEL [Suspect]
     Indication: POST-TRAUMATIC STRESS DISORDER
     Route: 048
  7. ZOLOFT [Suspect]
     Indication: POST-TRAUMATIC STRESS DISORDER
     Route: 048
     Dates: start: 20030101
  8. ATIVAN [Suspect]
     Indication: DEPRESSION
  9. ATIVAN [Suspect]
     Indication: POST-TRAUMATIC STRESS DISORDER
  10. SEROQUEL [Suspect]
     Indication: ANXIETY DISORDER
     Route: 048
  11. SEROQUEL [Suspect]
     Indication: DEPRESSION
     Route: 048
  12. ZOLOFT [Suspect]
     Indication: PANIC DISORDER
     Route: 048
     Dates: start: 20030101

REACTIONS (4)
  - LOW DENSITY LIPOPROTEIN INCREASED [None]
  - BLOOD CHOLESTEROL INCREASED [None]
  - BLOOD TRIGLYCERIDES INCREASED [None]
  - WEIGHT INCREASED [None]
